FAERS Safety Report 9428978 (Version 1)
Quarter: 2013Q3

REPORT INFORMATION
  Report Type: Report from Study
  Country: US (occurrence: US)
  Receive Date: 20130730
  Receipt Date: 20130730
  Transmission Date: 20140515
  Serious: No
  Sender: FDA-Public Use
  Company Number: US-ABBOTT-12P-163-1010202-00

PATIENT
  Age: 64 Year
  Sex: Male
  Weight: 118.04 kg

DRUGS (5)
  1. NIASPAN [Suspect]
     Indication: MENIERE^S DISEASE
  2. NIASPAN [Suspect]
     Indication: TINNITUS
  3. PRAVASTATIN [Concomitant]
     Indication: PRODUCT USED FOR UNKNOWN INDICATION
  4. METFORMIN [Concomitant]
     Indication: PRODUCT USED FOR UNKNOWN INDICATION
  5. UNKNOWN ANTIBIOTIC [Concomitant]
     Indication: SINUS HEADACHE

REACTIONS (2)
  - Abdominal discomfort [Recovered/Resolved]
  - Burning sensation [Recovered/Resolved]
